FAERS Safety Report 7703074-5 (Version None)
Quarter: 2011Q3

REPORT INFORMATION
  Report Type: 
  Country: None (occurrence: None)
  Receive Date: 20110823
  Receipt Date: 20110811
  Transmission Date: 20111222
  Serious: Yes (Hospitalization)
  Sender: FDA-Public Use
  Company Number: IE-US-EMD SERONO, INC.-7048918

PATIENT
  Sex: Male

DRUGS (3)
  1. FLU VACCINE [Concomitant]
     Dates: start: 20110101
  2. REBIF [Suspect]
     Indication: RELAPSING-REMITTING MULTIPLE SCLEROSIS
     Dates: start: 20090309
  3. SWINE FLU VACCINE [Concomitant]
     Dates: start: 20110101

REACTIONS (5)
  - EAR INFECTION [None]
  - PARAESTHESIA [None]
  - BACK PAIN [None]
  - INJECTION SITE HAEMATOMA [None]
  - PAIN IN EXTREMITY [None]
